FAERS Safety Report 9300476 (Version 2)
Quarter: 2013Q1

REPORT INFORMATION
  Report Type: Spontaneous
  Country: JP (occurrence: None)
  Receive Date: 20121114
  Receipt Date: 20121115
  Transmission Date: 20140127
  Serious: Yes (Hospitalization, Other)
  Sender: FDA-Public Use
  Company Number: ADR-2012-02057

PATIENT
  Age: 15 Year
  Sex: Male

DRUGS (4)
  1. GABALON [Suspect]
     Indication: MUSCLE SPASTICITY
     Route: 037
  2. PHENOBAL [Concomitant]
  3. ALFAROL [Concomitant]
  4. MAGNESIUM OXIDE [Concomitant]

REACTIONS (5)
  - Wound dehiscence [None]
  - Device related infection [None]
  - Implant site infection [None]
  - Post procedural infection [None]
  - Decubitus ulcer [None]
